FAERS Safety Report 5521887-5 (Version None)
Quarter: 2007Q4

REPORT INFORMATION
  Report Type: 
  Country: None (occurrence: None)
  Receive Date: 20071115
  Receipt Date: 20071031
  Transmission Date: 20080405
  Serious: Yes (Disabling, Other)
  Sender: FDA-Public Use
  Company Number: E2020-01802-SPO-GB

PATIENT
  Age: 85 Year
  Sex: Female

DRUGS (3)
  1. ARICEPT [Suspect]
     Dosage: 5 MG, 1 IN 1 D, ORAL
     Route: 048
     Dates: start: 20070825, end: 20070910
  2. FLOXACILLIN SODIUM [Concomitant]
  3. TRIMETHOPRIM [Concomitant]

REACTIONS (2)
  - BLISTER [None]
  - RASH [None]
